FAERS Safety Report 6970222-4 (Version None)
Quarter: 2010Q3

REPORT INFORMATION
  Report Type: 
  Country: None (occurrence: None)
  Receive Date: 20100908
  Receipt Date: 20100831
  Transmission Date: 20110219
  Serious: Yes (Hospitalization, Other)
  Sender: FDA-Public Use
  Company Number: JP-MPIJNJ-2009_01831

PATIENT

DRUGS (18)
  1. VELCADE [Suspect]
     Indication: MULTIPLE MYELOMA
     Dosage: 2.25 MG, UNK
     Route: 041
     Dates: start: 20090310, end: 20090313
  2. VELCADE [Suspect]
     Dosage: 1.67 MG, UNK
     Route: 041
     Dates: start: 20090330, end: 20090409
  3. VORINOSTAT [Suspect]
     Indication: MULTIPLE MYELOMA
     Dosage: 400 MG, UNK
     Route: 048
     Dates: start: 20090310, end: 20090409
  4. SELBEX [Concomitant]
     Indication: GASTRITIS PROPHYLAXIS
     Dosage: 50 MG, UNK
     Route: 048
     Dates: start: 20060331
  5. KETOPROFEN [Concomitant]
     Indication: BONE PAIN
     Dosage: UNK
     Route: 062
     Dates: start: 20081203
  6. MAG-LAX [Concomitant]
     Indication: CONSTIPATION
     Dosage: 330 MG, UNK
     Route: 048
     Dates: start: 20090310
  7. OXYCONTIN [Concomitant]
     Indication: BONE PAIN
     Dosage: 20 MG, UNK
     Route: 048
     Dates: start: 20090312, end: 20090408
  8. ADALAT CC [Concomitant]
     Indication: HYPERTENSION
     Dosage: 40 MG, UNK
     Route: 048
     Dates: start: 20090224
  9. LONGES [Concomitant]
     Indication: HYPERTENSION
     Dosage: 15 MG, UNK
     Route: 048
     Dates: start: 20090224
  10. FLUITRAN [Concomitant]
     Indication: HYPERTENSION
     Dosage: 1 MG, UNK
     Route: 048
     Dates: start: 20090224
  11. ALLOPURINOL [Concomitant]
     Indication: PROPHYLAXIS
     Dosage: 100 MG, UNK
     Route: 048
     Dates: start: 20090224
  12. ACTONEL [Concomitant]
     Indication: OSTEOPOROSIS
     Dosage: 17.5 MG, UNK
     Route: 048
     Dates: start: 20090201
  13. KYTRIL [Concomitant]
     Indication: PROPHYLAXIS OF NAUSEA AND VOMITING
     Dosage: 2 MG, UNK
     Route: 048
     Dates: start: 20090327, end: 20090412
  14. LEVOFLOXACIN [Concomitant]
     Indication: PROPHYLAXIS
     Dosage: 100 MG, UNK
     Route: 048
     Dates: start: 20090327, end: 20090401
  15. SOLDEM 3A [Concomitant]
     Indication: NAUSEA
     Dosage: 1000 ML, UNK
     Route: 041
     Dates: start: 20090330, end: 20090405
  16. PRIMPERAN TAB [Concomitant]
     Indication: PROPHYLAXIS OF NAUSEA AND VOMITING
     Dosage: 10 MG, UNK
     Route: 041
     Dates: start: 20090330, end: 20090405
  17. FAMOTIDINE [Concomitant]
     Indication: GASTRITIS PROPHYLAXIS
     Dosage: 20 MG, UNK
     Route: 048
     Dates: start: 20060331
  18. PENTAZOCINE LACTATE [Concomitant]
     Indication: BONE PAIN
     Dosage: 25 MG, UNK
     Route: 048
     Dates: start: 20090204, end: 20090412

REACTIONS (17)
  - ALANINE AMINOTRANSFERASE INCREASED [None]
  - BLOOD ALBUMIN DECREASED [None]
  - CONSTIPATION [None]
  - DECREASED APPETITE [None]
  - DEHYDRATION [None]
  - DIARRHOEA [None]
  - FATIGUE [None]
  - HAEMOGLOBIN DECREASED [None]
  - LEUKOPENIA [None]
  - LIVER DISORDER [None]
  - LYMPHOPENIA [None]
  - NAUSEA [None]
  - NEUTROPENIA [None]
  - PNEUMONIA [None]
  - THROMBOCYTOPENIA [None]
  - VOMITING [None]
  - WEIGHT DECREASED [None]
